FAERS Safety Report 5140956-5 (Version None)
Quarter: 2006Q4

REPORT INFORMATION
  Report Type: 
  Country: None (occurrence: None)
  Receive Date: 20061027
  Receipt Date: 20061027
  Transmission Date: 20070319
  Serious: Yes (Life-Threatening, Hospitalization)
  Sender: FDA-Public Use
  Company Number: None

PATIENT
  Sex: Male
  Weight: 78.9259 kg

DRUGS (8)
  1. ZIAGEN [Suspect]
     Indication: HIV INFECTION
     Dosage: 300MG   300 BID (FREQUENCY PARTIALLY ILLEGIBLE - SEE IMAGE)   PO
     Route: 048
     Dates: start: 20060818, end: 20060823
  2. KALETRA [Concomitant]
  3. EPIVIR [Concomitant]
  4. TMP SMZ DS [Concomitant]
  5. LISINOPRIL [Concomitant]
  6. HYDROCHLOROTHIAZIDE [Concomitant]
  7. CLARITIN [Concomitant]
  8. FERROUS SULFATE TAB [Concomitant]

REACTIONS (8)
  - CONSTIPATION [None]
  - DIZZINESS [None]
  - DYSURIA [None]
  - HAEMATURIA [None]
  - INCORRECT DOSE ADMINISTERED [None]
  - POLLAKIURIA [None]
  - SEPSIS SYNDROME [None]
  - VOMITING [None]
